FAERS Safety Report 10026068 (Version 1)
Quarter: 2014Q1

REPORT INFORMATION
  Report Type: Spontaneous
  Country: DE (occurrence: DE)
  Receive Date: 20140320
  Receipt Date: 20140320
  Transmission Date: 20141002
  Serious: Yes (Hospitalization)
  Sender: FDA-Public Use
  Company Number: DE-MYLANLABS-2014S1005328

PATIENT
  Age: 9 Month
  Sex: Male
  Weight: 7.6 kg

DRUGS (4)
  1. VALPROINSAURE CHRONO [Suspect]
     Indication: EPILEPSY
     Dosage: DAILY DOSE: 180 MG MILLGRAM(S) EVERY DAYS
     Route: 048
     Dates: start: 20120618
  2. KEPPRA [Suspect]
     Indication: EPILEPSY
     Dosage: DAILY DOSE: 600 MG MILLGRAM(S) EVERY DAYS
     Route: 048
     Dates: start: 20111025
  3. L-THYROXIN [Concomitant]
     Indication: HYPOTHYROIDISM
     Dosage: DAILY DOSE: 12.5 ?G MICROGRAM(S) EVERY DAYS
     Route: 048
     Dates: start: 20111028
  4. D-FLUORETTEN /01518601/ [Concomitant]
     Indication: PROPHYLAXIS
     Dosage: DAILY DOSE: 500 IU INTERNATIONAL UNIT(S) EVERY DAYS
     Dates: start: 20111018

REACTIONS (1)
  - Diet refusal [Recovering/Resolving]
